APPROVED DRUG PRODUCT: PIOGLITAZONE HYDROCHLORIDE
Active Ingredient: PIOGLITAZONE HYDROCHLORIDE
Strength: EQ 45MG BASE
Dosage Form/Route: TABLET;ORAL
Application: A091298 | Product #003
Applicant: TORRENT PHARMACEUTICALS LTD
Approved: Feb 13, 2013 | RLD: No | RS: No | Type: DISCN